FAERS Safety Report 6651036-1 (Version None)
Quarter: 2010Q1

REPORT INFORMATION
  Report Type: 
  Country: None (occurrence: None)
  Receive Date: 20100325
  Receipt Date: 20100318
  Transmission Date: 20100710
  Serious: Yes (Disabling)
  Sender: FDA-Public Use
  Company Number: JP-BAYER-200911741BYL

PATIENT
  Age: 75 Year
  Sex: Female
  Weight: 43 kg

DRUGS (5)
  1. NEXAVAR [Suspect]
     Indication: RENAL CELL CARCINOMA
     Dosage: TOTAL DAILY DOSE: 800 MG  UNIT DOSE: 200 MG
     Route: 048
     Dates: start: 20080829, end: 20080909
  2. NEXAVAR [Suspect]
     Dosage: UNIT DOSE: 200 MG
     Route: 048
     Dates: start: 20080922, end: 20090529
  3. TAGAMET [Concomitant]
     Route: 048
     Dates: start: 20060830, end: 20090815
  4. PROMAC [Concomitant]
     Route: 048
     Dates: start: 20070119, end: 20080912
  5. RADICUT [Concomitant]
     Indication: CEREBRAL INFARCTION
     Route: 042
     Dates: start: 20090518, end: 20090529

REACTIONS (10)
  - ALOPECIA [None]
  - BLOOD AMYLASE INCREASED [None]
  - CEREBRAL INFARCTION [None]
  - DYSPHONIA [None]
  - HYPERTENSION [None]
  - LIPASE INCREASED [None]
  - MYOCARDIAL INFARCTION [None]
  - PROTEIN URINE [None]
  - PRURITUS [None]
  - RASH [None]
